FAERS Safety Report 23284541 (Version 1)
Quarter: 2023Q4

REPORT INFORMATION
  Report Type: Spontaneous
  Country: JP (occurrence: JP)
  Receive Date: 20231211
  Receipt Date: 20231211
  Transmission Date: 20240109
  Serious: Yes (Life-Threatening, Hospitalization, Other)
  Sender: FDA-Public Use
  Company Number: JP-ferring-EVA202301528FERRINGPH

PATIENT

DRUGS (1)
  1. DINOPROSTONE [Suspect]
     Active Substance: DINOPROSTONE
     Indication: Labour induction
     Dosage: 10 MG, ONCE/SINGLE
     Route: 067
     Dates: start: 20230713, end: 20230713

REACTIONS (5)
  - Uterine hyperstimulation [Recovered/Resolved]
  - Uterine contractions abnormal [Recovered/Resolved]
  - Vaginal haemorrhage [Recovered/Resolved]
  - Blood pressure decreased [Recovered/Resolved]
  - Depressed level of consciousness [Recovered/Resolved]

NARRATIVE: CASE EVENT DATE: 20230713
